FAERS Safety Report 9204779 (Version 2)
Quarter: 2013Q4

REPORT INFORMATION
  Report Type: Spontaneous
  Country: US (occurrence: US)
  Receive Date: 20130402
  Receipt Date: 20131016
  Transmission Date: 20140711
  Serious: Yes (Hospitalization, Disabling)
  Sender: FDA-Public Use
  Company Number: US-BAYER-2013-039227

PATIENT
  Age: 28 Year
  Sex: Female

DRUGS (13)
  1. YAZ [Suspect]
     Dosage: UNK
     Dates: start: 2008, end: 2009
  2. YASMIN [Suspect]
     Dosage: UNK
     Dates: start: 2008, end: 2009
  3. OCELLA [Suspect]
     Dosage: UNK
     Dates: start: 2008, end: 2009
  4. ONDANSETRON [Concomitant]
  5. NITROFURANTOIN [Concomitant]
  6. OXYCODONE/APAP [Concomitant]
  7. ATENOLOL [Concomitant]
  8. AZITHROMYCIN [Concomitant]
  9. EPIPEN [Concomitant]
  10. FLUCONAZOLE [Concomitant]
  11. MULTIVITAMINS PLUS IRON [Concomitant]
  12. FISH OIL [Concomitant]
  13. GARLIC [Concomitant]

REACTIONS (8)
  - Gallbladder disorder [None]
  - Biliary dyskinesia [None]
  - Injury [None]
  - Deformity [None]
  - Anxiety [None]
  - Anhedonia [None]
  - Pain [None]
  - Emotional distress [None]
